FAERS Safety Report 15976440 (Version 1)
Quarter: 2019Q1

REPORT INFORMATION
  Report Type: Spontaneous
  Country: US (occurrence: US)
  Receive Date: 20190218
  Receipt Date: 20190218
  Transmission Date: 20190418
  Serious: Yes (Hospitalization, Disabling)
  Sender: FDA-Public Use
  Company Number: US-COVIS PHARMA B.V.-2019COV00066

PATIENT
  Age: 56 Year
  Sex: Female
  Weight: 78.46 kg

DRUGS (6)
  1. OXYCODONE [Concomitant]
     Active Substance: OXYCODONE
     Dosage: 15 MG, 4X/DAY
     Route: 048
     Dates: start: 1989
  2. BACLOFEN. [Concomitant]
     Active Substance: BACLOFEN
     Dosage: UNK UNK, 3X/DAY
     Route: 048
     Dates: start: 2017
  3. XARELTO [Concomitant]
     Active Substance: RIVAROXABAN
     Dosage: 20 MG, 1X/DAY
     Route: 048
     Dates: start: 201810
  4. MOVANTIK [Suspect]
     Active Substance: NALOXEGOL OXALATE
     Indication: CONSTIPATION
     Dosage: 12.5 MG, 1X/DAY
     Route: 048
     Dates: start: 201810, end: 201810
  5. MORPHINE [Concomitant]
     Active Substance: MORPHINE
     Dosage: 15 MG AT NIGHT
     Route: 048
  6. OMEPRAZOLE MAGNESIUM. [Suspect]
     Active Substance: OMEPRAZOLE MAGNESIUM
     Indication: GASTROOESOPHAGEAL REFLUX DISEASE
     Dosage: UNK UNK, 1X/DAY
     Route: 048
     Dates: start: 2013

REACTIONS (8)
  - Balance disorder [Not Recovered/Not Resolved]
  - Large intestine polyp [Unknown]
  - White blood cell count abnormal [Unknown]
  - Weight decreased [Not Recovered/Not Resolved]
  - Small intestinal resection [Not Recovered/Not Resolved]
  - Rectal haemorrhage [Recovered/Resolved]
  - Abdominal pain [Recovered/Resolved]
  - Infection [Unknown]

NARRATIVE: CASE EVENT DATE: 201810
